FAERS Safety Report 18031448 (Version 3)
Quarter: 2020Q3

REPORT INFORMATION
  Report Type: Spontaneous
  Country: IN (occurrence: IN)
  Receive Date: 20200716
  Receipt Date: 20200909
  Transmission Date: 20201103
  Serious: Yes (Life-Threatening, Hospitalization, Other)
  Sender: FDA-Public Use
  Company Number: IN-ACCORD-190186

PATIENT
  Age: 32 Year
  Sex: Female

DRUGS (1)
  1. HYDROXYCHLOROQUINE [Suspect]
     Active Substance: HYDROXYCHLOROQUINE
     Indication: PROPHYLAXIS
     Dosage: 1 DOSE 800 MG ON FIRST DAY, SECOND DOSE 400 MG AFTER 1 WEEK, AND THE SAME DOSE IN 3 WEEK

REACTIONS (3)
  - Tachycardia [Recovering/Resolving]
  - Myasthenia gravis [Recovering/Resolving]
  - Tachypnoea [Recovering/Resolving]
